FAERS Safety Report 7465852-X (Version None)
Quarter: 2011Q2

REPORT INFORMATION
  Report Type: 
  Country: None (occurrence: None)
  Receive Date: 20110509
  Receipt Date: 20100421
  Transmission Date: 20111010
  Serious: No
  Sender: FDA-Public Use
  Company Number: US-ALEXION-A201000410

PATIENT
  Sex: Male

DRUGS (13)
  1. NORVASC [Concomitant]
     Indication: BLOOD PRESSURE
     Dosage: 5 MG, BID
     Route: 048
  2. CALCIUM [Concomitant]
     Dosage: 500 MG, QD
     Route: 048
  3. PAXIL [Concomitant]
     Indication: ANXIETY
     Dosage: 10 MG, QD
     Route: 048
  4. VITAMIN B12                        /00056201/ [Concomitant]
     Dosage: 1000 UG, QD
     Route: 048
  5. SOLIRIS [Suspect]
     Indication: PAROXYSMAL NOCTURNAL HAEMOGLOBINURIA
     Dosage: UNK
     Route: 042
     Dates: start: 20100402
  6. CASODEX [Concomitant]
     Indication: PROSTATE CANCER
     Dosage: 50 MG, QD
     Route: 048
  7. VITAMIN A [Concomitant]
     Dosage: UNK
     Route: 048
  8. FOLIC ACID [Concomitant]
     Indication: PAROXYSMAL NOCTURNAL HAEMOGLOBINURIA
     Dosage: 1 MG, QD
     Route: 048
  9. PAXIL [Concomitant]
     Indication: POST-TRAUMATIC STRESS DISORDER
  10. VANTAS [Concomitant]
     Indication: PROSTATE CANCER
     Dosage: Q6M
  11. ACEON                              /00790702/ [Concomitant]
     Indication: BLOOD PRESSURE
     Dosage: 8 MG, QD
     Route: 048
  12. RESTORIL                           /00393701/ [Concomitant]
     Indication: SLEEP DISORDER
     Dosage: UNK
     Route: 048
  13. VITAMIN B6 [Concomitant]
     Dosage: 100 MG, QD
     Route: 048

REACTIONS (2)
  - GENITAL RASH [None]
  - DIARRHOEA [None]
